FAERS Safety Report 10011656 (Version 1)
Quarter: 2014Q1

REPORT INFORMATION
  Report Type: Spontaneous
  Country: US (occurrence: None)
  Receive Date: 20140304
  Receipt Date: 20140304
  Transmission Date: 20141002
  Serious: Yes (Death)
  Sender: FDA-Public Use
  Company Number: RB-56578-2013

PATIENT
  Age: 23 Year
  Sex: Male
  Weight: 86.46 kg

DRUGS (5)
  1. SUBOXONE [Suspect]
     Indication: PRODUCT USED FOR UNKNOWN INDICATION
     Dosage: TOOK 2 TABLETS
     Route: 060
     Dates: start: 201010, end: 201010
  2. CANNABIS [Suspect]
     Indication: PRODUCT USED FOR UNKNOWN INDICATION
     Dates: end: 201010
  3. NICOTINE [Suspect]
     Indication: PRODUCT USED FOR UNKNOWN INDICATION
     Dates: end: 201010
  4. CAFFEINE [Suspect]
     Indication: PRODUCT USED FOR UNKNOWN INDICATION
     Dosage: DOSING UNKNOWN
     Dates: end: 201010
  5. THEOBROMINE [Suspect]
     Indication: PRODUCT USED FOR UNKNOWN INDICATION
     Dosage: DOSING UNKNOWN
     Dates: end: 201010

REACTIONS (4)
  - Substance abuse [None]
  - Overdose [None]
  - Drug abuse [None]
  - Toxicity to various agents [None]
